FAERS Safety Report 5152307-0 (Version None)
Quarter: 2006Q4

REPORT INFORMATION
  Report Type: 
  Country: None (occurrence: None)
  Receive Date: 20061116
  Receipt Date: 20061106
  Transmission Date: 20070319
  Serious: Yes (Other)
  Sender: FDA-Public Use
  Company Number: GB-ROCHE-470102

PATIENT
  Age: 73 Year
  Sex: Female
  Weight: 76.2 kg

DRUGS (1)
  1. XENICAL [Suspect]
     Indication: OBESITY
     Route: 048
     Dates: start: 20061016, end: 20061104

REACTIONS (2)
  - DIZZINESS [None]
  - ILL-DEFINED DISORDER [None]
